FAERS Safety Report 8805587 (Version 2)
Quarter: 2013Q1

REPORT INFORMATION
  Report Type: Spontaneous
  Country: US (occurrence: US)
  Receive Date: 20120924
  Receipt Date: 20130110
  Transmission Date: 20140127
  Serious: No
  Sender: FDA-Public Use
  Company Number: US-009507513-1209USA001003

PATIENT
  Age: 42 Year
  Sex: Female

DRUGS (1)
  1. AZASITE [Suspect]
     Indication: CONJUNCTIVITIS INFECTIVE
     Dosage: 6 GTT, QD
     Route: 047
     Dates: start: 20120815, end: 20120831

REACTIONS (6)
  - Hypersensitivity [Recovering/Resolving]
  - Ocular hyperaemia [Recovering/Resolving]
  - Eye swelling [Recovering/Resolving]
  - Eye pain [Recovering/Resolving]
  - Overdose [Unknown]
  - Incorrect drug administration duration [Unknown]
